FAERS Safety Report 7648837-X (Version None)
Quarter: 2011Q3

REPORT INFORMATION
  Report Type: 
  Country: None (occurrence: None)
  Receive Date: 20110801
  Receipt Date: 20110722
  Transmission Date: 20111222
  Serious: Yes (Hospitalization)
  Sender: FDA-Public Use
  Company Number: PHHY2011JP49186

PATIENT
  Age: 68 Year
  Sex: Female

DRUGS (1)
  1. METHOTREXATE [Suspect]
     Indication: RHEUMATOID ARTHRITIS
     Dosage: 10 MG, UNK
     Dates: start: 19961201

REACTIONS (6)
  - LUNG NEOPLASM [None]
  - METASTASES TO LYMPH NODES [None]
  - LYMPHADENOPATHY [None]
  - MASS [None]
  - LYMPHOPROLIFERATIVE DISORDER [None]
  - LOCAL SWELLING [None]
